FAERS Safety Report 4518748-7 (Version None)
Quarter: 2004Q4

REPORT INFORMATION
  Report Type: 
  Country: None (occurrence: None)
  Receive Date: 20041201
  Receipt Date: 20041119
  Transmission Date: 20050328
  Serious: Yes (Death, Other)
  Sender: FDA-Public Use
  Company Number: USA-2003-0010481

PATIENT
  Age: 42 Year
  Sex: Female
  Weight: 91.6 kg

DRUGS (25)
  1. OXYCONTIN [Suspect]
     Dosage: SEE IMAGE
  2. ETHANOL (ETHANOL) [Suspect]
  3. ELAVIL [Suspect]
  4. NORTRIPTYLINE HCL [Suspect]
  5. PAXIL [Suspect]
  6. NEOMYCIN [Concomitant]
  7. TEGRETOL [Concomitant]
  8. NEURONTIN [Concomitant]
  9. ACIPHEX [Concomitant]
  10. ESTRATEST [Concomitant]
  11. BELLERGAL-S (PHENOBARBITAL, ERGOTAMINE TARTRATE, BELLADONNA ALKALOIDS) [Concomitant]
  12. PROPOXYPHENE [Concomitant]
  13. ATENOLOL [Concomitant]
  14. IMITREX ^CERENEX^ (SUMATRIPTAN SUCCINATE) [Concomitant]
  15. LORAZEPAM [Concomitant]
  16. REGLAN [Concomitant]
  17. TRIMETHOBENZAMIDE (TRIMETHOBENZAMIDE) [Concomitant]
  18. HYDROXYZINE [Concomitant]
  19. TENORMIN [Concomitant]
  20. PREMARIN [Concomitant]
  21. PRILOSEC [Concomitant]
  22. ZONEGRAN [Concomitant]
  23. TOPAMAX [Concomitant]
  24. LAMICTAL [Concomitant]
  25. MULTIVITAMIN [Concomitant]

REACTIONS (20)
  - ANXIETY [None]
  - AREFLEXIA [None]
  - ASTHENIA [None]
  - BLOOD ETHANOL INCREASED [None]
  - CARDIAC ARREST [None]
  - COMA [None]
  - CYANOSIS [None]
  - DEPRESSION [None]
  - DRUG DEPENDENCE [None]
  - DRUG INEFFECTIVE [None]
  - DRUG WITHDRAWAL SYNDROME [None]
  - HEADACHE [None]
  - MULTIPLE DRUG OVERDOSE ACCIDENTAL [None]
  - MUSCLE RIGIDITY [None]
  - PAIN [None]
  - PAIN IN EXTREMITY [None]
  - PERIPHERAL COLDNESS [None]
  - POISONING [None]
  - SENSORY DISTURBANCE [None]
  - SUICIDAL IDEATION [None]
